FAERS Safety Report 15670110 (Version 1)
Quarter: 2018Q4

REPORT INFORMATION
  Report Type: Spontaneous
  Country: IT (occurrence: IT)
  Receive Date: 20181129
  Receipt Date: 20181129
  Transmission Date: 20190205
  Serious: Yes (Other)
  Sender: FDA-Public Use
  Company Number: IT-SA-2018SA291016

PATIENT
  Age: 45 Year
  Sex: Female

DRUGS (4)
  1. CERDELGA [Suspect]
     Active Substance: ELIGLUSTAT
     Dosage: UNK
     Route: 048
     Dates: start: 201803, end: 201810
  2. DIBASE [Concomitant]
     Active Substance: CHOLECALCIFEROL
  3. FOLIC ACID. [Concomitant]
     Active Substance: FOLIC ACID
  4. ASACOL [Concomitant]
     Active Substance: MESALAMINE

REACTIONS (4)
  - Frequent bowel movements [Recovering/Resolving]
  - Diarrhoea haemorrhagic [Recovering/Resolving]
  - Condition aggravated [Unknown]
  - Diarrhoea [Recovering/Resolving]

NARRATIVE: CASE EVENT DATE: 201810
